FAERS Safety Report 22131054 (Version 1)
Quarter: 2023Q1

REPORT INFORMATION
  Report Type: Spontaneous
  Country: US (occurrence: US)
  Receive Date: 20230323
  Receipt Date: 20230323
  Transmission Date: 20230417
  Serious: No
  Sender: FDA-Public Use
  Company Number: US-ALLERGAN-2227193US

PATIENT

DRUGS (2)
  1. ASPIRIN\BUTALBITAL\CAFFEINE\CODEINE [Suspect]
     Active Substance: ASPIRIN\BUTALBITAL\CAFFEINE\CODEINE
     Indication: Product used for unknown indication
     Dosage: 4-5/DAY
  2. ASPIRIN\BUTALBITAL\CAFFEINE\CODEINE [Suspect]
     Active Substance: ASPIRIN\BUTALBITAL\CAFFEINE\CODEINE
     Dosage: 7/DAY

REACTIONS (1)
  - Intentional product misuse [Unknown]
